FAERS Safety Report 7178706-3 (Version None)
Quarter: 2010Q4

REPORT INFORMATION
  Report Type: 
  Country: None (occurrence: None)
  Receive Date: 20101221
  Receipt Date: 20101213
  Transmission Date: 20110411
  Serious: Yes (Other)
  Sender: FDA-Public Use
  Company Number: US-RB-016921-10

PATIENT
  Age: 92 Year
  Sex: Female

DRUGS (1)
  1. MUCINEX DM [Suspect]
     Indication: COUGH
     Dosage: TOTALING EIGHT TABLETS.
     Route: 048

REACTIONS (1)
  - HYPERTENSION [None]
